FAERS Safety Report 8779325 (Version 1)
Quarter: 2012Q4

REPORT INFORMATION
  Report Type: 
  Country: SE (occurrence: SE)
  Receive Date: 20120912
  Receipt Date: 20120912
  Transmission Date: 20130627
  Serious: Yes (Death)
  Sender: FDA-Public Use
  Company Number: SE-MYLANLABS-2012S1018126

PATIENT
  Age: 25 Year
  Sex: Male

DRUGS (5)
  1. METHADONE [Suspect]
     Indication: COMPLETED SUICIDE
     Route: 065
  2. BUPRENORPHINE [Concomitant]
     Route: 065
  3. MORPHINE [Concomitant]
     Route: 065
  4. CODEINE [Concomitant]
     Route: 065
  5. DIAZEPAM [Concomitant]
     Route: 065

REACTIONS (4)
  - Intentional overdose [Fatal]
  - Completed suicide [Fatal]
  - Drug screen positive [None]
  - Drug screen positive [None]
